FAERS Safety Report 6416556-3 (Version None)
Quarter: 2009Q4

REPORT INFORMATION
  Report Type: 
  Country: None (occurrence: None)
  Receive Date: 20091027
  Receipt Date: 20091023
  Transmission Date: 20100525
  Serious: Yes (Death)
  Sender: FDA-Public Use
  Company Number: PHHY2009IN45921

PATIENT
  Age: 15 Year
  Sex: Female

DRUGS (1)
  1. ASUNRA [Suspect]
     Dosage: 400 MG, QD
     Route: 048

REACTIONS (2)
  - IRON OVERLOAD [None]
  - RENAL FAILURE [None]
